FAERS Safety Report 15324448 (Version 1)
Quarter: 2018Q3

REPORT INFORMATION
  Report Type: Report from Study
  Country: CO (occurrence: CO)
  Receive Date: 20180828
  Receipt Date: 20180828
  Transmission Date: 20181010
  Serious: Yes (Death)
  Sender: FDA-Public Use
  Company Number: CO-ASTELLAS-2018US038265

PATIENT
  Age: 68 Year
  Sex: Male

DRUGS (1)
  1. TACROLIMUS. [Suspect]
     Active Substance: TACROLIMUS
     Indication: RENAL TRANSPLANT
     Route: 048
     Dates: end: 20180808

REACTIONS (4)
  - Haemorrhage [Fatal]
  - Oral infection [Fatal]
  - Gastritis bacterial [Fatal]
  - Renal haematoma [Fatal]

NARRATIVE: CASE EVENT DATE: 201802
